FAERS Safety Report 5304115-5 (Version None)
Quarter: 2007Q2

REPORT INFORMATION
  Report Type: 
  Country: None (occurrence: None)
  Receive Date: 20070423
  Receipt Date: 20070410
  Transmission Date: 20071010
  Serious: Yes (Hospitalization)
  Sender: FDA-Public Use
  Company Number: PHHO2007IN01001

PATIENT
  Age: 56 Year
  Sex: Male
  Weight: 65 kg

DRUGS (2)
  1. ALISKIREN VS SPH100 [Suspect]
     Indication: ESSENTIAL HYPERTENSION
     Dosage: 300 MG, + 25MG HCTZ
     Route: 048
     Dates: start: 20061106, end: 20070105
  2. ALISKIREN [Suspect]
     Indication: ESSENTIAL HYPERTENSION
     Dosage: NO TREATMENT

REACTIONS (8)
  - ALANINE AMINOTRANSFERASE INCREASED [None]
  - ASPARTATE AMINOTRANSFERASE INCREASED [None]
  - BLOOD CREATINE PHOSPHOKINASE INCREASED [None]
  - BLOOD SODIUM DECREASED [None]
  - DISEASE PROGRESSION [None]
  - ELECTROLYTE IMBALANCE [None]
  - GRAND MAL CONVULSION [None]
  - TONGUE BITING [None]
